FAERS Safety Report 15907955 (Version 1)
Quarter: 2019Q1

REPORT INFORMATION
  Report Type: Spontaneous
  Country: BR (occurrence: BR)
  Receive Date: 20190204
  Receipt Date: 20190204
  Transmission Date: 20190417
  Serious: Yes (Other)
  Sender: FDA-Public Use
  Company Number: BR-PFIZER INC-2019041672

PATIENT
  Sex: Female

DRUGS (1)
  1. MIANTREX CS [Suspect]
     Active Substance: METHOTREXATE SODIUM
     Dosage: HIGH DOSE

REACTIONS (2)
  - Pericardial effusion [Unknown]
  - Pleural effusion [Unknown]
